FAERS Safety Report 6613270 (Version 3)
Quarter: 2017Q3

REPORT INFORMATION
  Report Type: Spontaneous
  Country: US (occurrence: US)
  Receive Date: 20080411
  Receipt Date: 20170927
  Transmission Date: 20171128
  Serious: Yes (Hospitalization, Disabling, Other)
  Sender: FDA-Public Use
  Company Number: US-PFIZER INC-2008029985

PATIENT
  Age: 42 Year
  Sex: Female

DRUGS (3)
  1. CELEBREX [Suspect]
     Active Substance: CELECOXIB
     Indication: ANALGESIC INTERVENTION SUPPORTIVE THERAPY
  2. CELEBREX [Suspect]
     Active Substance: CELECOXIB
     Indication: PAIN MANAGEMENT
     Dosage: UNK
     Route: 048
  3. CELEBREX [Suspect]
     Active Substance: CELECOXIB
     Indication: BACK PAIN

REACTIONS (6)
  - Blindness [Unknown]
  - Amnesia [Unknown]
  - Depression [Unknown]
  - Anxiety [Unknown]
  - Ischaemic stroke [Unknown]
  - Suicidal ideation [Unknown]

NARRATIVE: CASE EVENT DATE: 200312
